FAERS Safety Report 8841295 (Version 2)
Quarter: 2012Q4

REPORT INFORMATION
  Report Type: 
  Country: US (occurrence: US)
  Receive Date: 20121015
  Receipt Date: 20121030
  Transmission Date: 20130627
  Serious: Yes (Death, Life-Threatening, Hospitalization, Other)
  Sender: FDA-Public Use
  Company Number: US-009507513-1210USA005543

PATIENT
  Sex: Male
  Weight: 199.55 kg

DRUGS (3)
  1. VICTRELIS [Suspect]
     Indication: HEPATITIS C
     Dosage: UNK
     Route: 048
     Dates: start: 20120702, end: 20120921
  2. RIBAPAK [Suspect]
     Indication: HEPATITIS C
     Dosage: UNK
     Dates: start: 20120604, end: 20120914
  3. PEGASYS [Suspect]
     Indication: HEPATITIS C
     Dosage: UNK
     Dates: start: 20120604, end: 20120914

REACTIONS (4)
  - Hepatorenal syndrome [Fatal]
  - Anaemia [Unknown]
  - Depressed level of consciousness [Unknown]
  - Blood pressure decreased [Unknown]
